FAERS Safety Report 5576089-3 (Version None)
Quarter: 2007Q4

REPORT INFORMATION
  Report Type: 
  Country: None (occurrence: None)
  Receive Date: 20071226
  Receipt Date: 20071212
  Transmission Date: 20080405
  Serious: Yes (Life-Threatening, Hospitalization, Other)
  Sender: FDA-Public Use
  Company Number: GXKR2007GB10656

PATIENT
  Age: 24 Year
  Sex: Male

DRUGS (12)
  1. SIMVASTATIN [Suspect]
     Dosage: 10 MG, QD, ORAL
     Route: 048
     Dates: start: 20040416
  2. ADALAT CC [Suspect]
     Dosage: 60 MG, QD, ORAL
     Route: 048
     Dates: start: 20020801
  3. SIROLIMUS(SIROLIMUS) [Suspect]
     Dosage: 2 MG, QD, ORAL
     Route: 048
     Dates: start: 20030818
  4. AZITHROMYCIN [Concomitant]
  5. CO-TRIMOXAZOLE (CO-TRIMOXAZOLE) [Concomitant]
  6. FERROUS GLUCONATE (FERROUS GLUCONATE) [Concomitant]
  7. FUROSEMIDE [Concomitant]
  8. LANTUS [Concomitant]
  9. NOVORAPID (INSULIN ASPART) [Concomitant]
  10. OMEPRAZOLE [Concomitant]
  11. PREDNISONE [Concomitant]
  12. TACROLIMUS [Concomitant]

REACTIONS (3)
  - BLOOD ALBUMIN DECREASED [None]
  - NEPHROTIC SYNDROME [None]
  - RENAL FAILURE CHRONIC [None]
